FAERS Safety Report 6408802-7 (Version None)
Quarter: 2009Q4

REPORT INFORMATION
  Report Type: 
  Country: None (occurrence: None)
  Receive Date: 20091021
  Receipt Date: 20091012
  Transmission Date: 20100525
  Serious: No
  Sender: FDA-Public Use
  Company Number: B0594534A

PATIENT
  Sex: Male
  Weight: 75 kg

DRUGS (1)
  1. FLONASE [Suspect]
     Indication: CHRONIC SINUSITIS
     Dosage: 6DROP TWICE PER DAY
     Route: 045
     Dates: start: 20080101

REACTIONS (2)
  - DRUG ABUSE [None]
  - OFF LABEL USE [None]
